FAERS Safety Report 19772463 (Version 3)
Quarter: 2021Q3

REPORT INFORMATION
  Report Type: Spontaneous
  Country: AR (occurrence: AR)
  Receive Date: 20210831
  Receipt Date: 20210916
  Transmission Date: 20211014
  Serious: Yes (Other)
  Sender: FDA-Public Use
  Company Number: AR-PFIZER INC-202101116616

PATIENT
  Age: 56 Year
  Sex: Female

DRUGS (3)
  1. METILPRES [Concomitant]
     Active Substance: PREDNISONE
  2. XELJANZ XR [Suspect]
     Active Substance: TOFACITINIB CITRATE
     Indication: RHEUMATOID ARTHRITIS
     Dosage: 11 MG, DAILY
     Dates: start: 20161205
  3. DICLOFENAC [Concomitant]
     Active Substance: DICLOFENAC

REACTIONS (3)
  - Developmental hip dysplasia [Unknown]
  - Diabetes mellitus [Unknown]
  - Spinal stenosis [Unknown]

NARRATIVE: CASE EVENT DATE: 202103
